FAERS Safety Report 18067281 (Version 2)
Quarter: 2020Q3

REPORT INFORMATION
  Report Type: Spontaneous
  Country: US (occurrence: US)
  Receive Date: 20200724
  Receipt Date: 20200803
  Transmission Date: 20201103
  Serious: Yes (Other)
  Sender: FDA-Public Use
  Company Number: US-LUNDBECK-DKLU3018986

PATIENT
  Age: 8 Year
  Sex: Male

DRUGS (4)
  1. SABRIL [Suspect]
     Active Substance: VIGABATRIN
     Indication: EPILEPSY
     Dosage: OVERDOSE: 4500MG DAILY
     Route: 048
  2. SABRIL [Suspect]
     Active Substance: VIGABATRIN
     Indication: PARTIAL SEIZURES
     Dosage: OVERDOSE: 3500MG DAILY
     Route: 048
     Dates: start: 20160312
  3. SABRIL [Suspect]
     Active Substance: VIGABATRIN
     Dosage: OVERDOSE: 4500MG DAILY
     Route: 048
  4. SABRIL [Suspect]
     Active Substance: VIGABATRIN
     Indication: FOCAL DYSCOGNITIVE SEIZURES
     Dosage: OVERDOSE: 3500MG DAILY
     Route: 048
     Dates: start: 20160312

REACTIONS (3)
  - Prescribed overdose [Unknown]
  - Product dose omission issue [Recovered/Resolved]
  - Drug withdrawal convulsions [Recovered/Resolved]

NARRATIVE: CASE EVENT DATE: 202007
